FAERS Safety Report 7484670-X (Version None)
Quarter: 2011Q2

REPORT INFORMATION
  Report Type: 
  Country: None (occurrence: None)
  Receive Date: 20110517
  Receipt Date: 20101203
  Transmission Date: 20111010
  Serious: Yes (Hospitalization, Other)
  Sender: FDA-Public Use
  Company Number: US-BAYER-2010-002552

PATIENT
  Sex: Male

DRUGS (1)
  1. SOTALOL HCL [Suspect]
     Dosage: DAILY DOSE 80 MG

REACTIONS (1)
  - VENTRICULAR EXTRASYSTOLES [None]
